FAERS Safety Report 11241084 (Version 1)
Quarter: 2015Q3

REPORT INFORMATION
  Report Type: Spontaneous
  Country: ZA (occurrence: ZA)
  Receive Date: 20150706
  Receipt Date: 20150706
  Transmission Date: 20151125
  Serious: Yes (Death, Congenital Anomaly)
  Sender: FDA-Public Use
  Company Number: ZA-BAYER-2015-367554

PATIENT

DRUGS (1)
  1. QLAIRA [Suspect]
     Active Substance: DIENOGEST\ESTRADIOL VALERATE
     Route: 064

REACTIONS (2)
  - Congenital anomaly [Fatal]
  - Exposure during pregnancy [None]
